FAERS Safety Report 8051288-X (Version None)
Quarter: 2012Q1

REPORT INFORMATION
  Report Type: 
  Country: None (occurrence: None)
  Receive Date: 20120117
  Receipt Date: 20120111
  Transmission Date: 20120608
  Serious: Yes (Death, Hospitalization)
  Sender: FDA-Public Use
  Company Number: US-MEDIMMUNE-MEDI-0014439

PATIENT
  Sex: Female
  Weight: 7.173 kg

DRUGS (4)
  1. SYNAGIS [Suspect]
     Route: 030
     Dates: start: 20111108, end: 20111208
  2. PEPCID [Concomitant]
  3. LASIX [Concomitant]
  4. DIGOXIN [Concomitant]

REACTIONS (1)
  - RESPIRATORY TRACT INFECTION [None]
